FAERS Safety Report 10149547 (Version 1)
Quarter: 2014Q2

REPORT INFORMATION
  Report Type: Spontaneous
  Country: AU (occurrence: None)
  Receive Date: 20140430
  Receipt Date: 20140430
  Transmission Date: 20141212
  Serious: Yes (Hospitalization)
  Sender: FDA-Public Use
  Company Number: 2014HINLIT0389

PATIENT
  Age: 51 Year
  Sex: Female

DRUGS (4)
  1. INDOMETHACIN [Suspect]
     Indication: COSTOVERTEBRAL ANGLE TENDERNESS
     Dosage: 100MG, SUPPOSITORY, UNKNOWN
  2. OXYCODONE (OXYCODONE) [Concomitant]
  3. PARACETAMOL [Concomitant]
  4. TRAMADOL (TRAMADOL) [Concomitant]

REACTIONS (2)
  - Cerebral vasoconstriction [None]
  - Vomiting [None]
